FAERS Safety Report 8256263-8 (Version None)
Quarter: 2012Q2

REPORT INFORMATION
  Report Type: 
  Country: None (occurrence: None)
  Receive Date: 20120403
  Receipt Date: 20120326
  Transmission Date: 20120825
  Serious: Yes (Hospitalization, Other)
  Sender: FDA-Public Use
  Company Number: BR-ASTRAZENECA-2011SE75032

PATIENT
  Age: 58 Year
  Sex: Male
  Weight: 98 kg

DRUGS (6)
  1. VASTAREL [Suspect]
     Route: 048
     Dates: start: 20110201
  2. ATACAND HCT [Suspect]
     Indication: HYPERTENSION
     Dosage: 16+12.5 MG DAILY
     Route: 048
     Dates: start: 20110201, end: 20120101
  3. ALDACTONE [Concomitant]
     Route: 048
     Dates: start: 20110201
  4. BRILINTA [Suspect]
     Indication: CORONARY ARTERY OCCLUSION
     Route: 048
     Dates: start: 20120101
  5. LIPITOR [Concomitant]
     Route: 048
     Dates: start: 20110201
  6. ENALAPRIL [Concomitant]
     Route: 048
     Dates: start: 20110201

REACTIONS (5)
  - CORONARY ARTERY DISEASE [None]
  - CHEST PAIN [None]
  - CORONARY ARTERY OCCLUSION [None]
  - FATIGUE [None]
  - OFF LABEL USE [None]
